FAERS Safety Report 8808040 (Version 3)
Quarter: 2012Q4

REPORT INFORMATION
  Report Type: 
  Country: GB (occurrence: GB)
  Receive Date: 20120925
  Receipt Date: 20121203
  Transmission Date: 20130627
  Serious: Yes (Other)
  Sender: FDA-Public Use
  Company Number: GB-US-EMD SERONO, INC.-7161762

PATIENT
  Sex: Female

DRUGS (2)
  1. REBIF [Suspect]
     Indication: MULTIPLE SCLEROSIS
     Dates: start: 201001
  2. TROSPIUM CHLORIDE [Suspect]
     Dates: start: 201101

REACTIONS (2)
  - Abortion spontaneous [Unknown]
  - Exposure via father [Unknown]
